FAERS Safety Report 22219267 (Version 1)
Quarter: 2023Q2

REPORT INFORMATION
  Report Type: Spontaneous
  Country: CA (occurrence: None)
  Receive Date: 20230416
  Receipt Date: 20230416
  Transmission Date: 20230722
  Serious: Yes (Other)
  Sender: FDA-Public Use
  Company Number: None

PATIENT
  Age: 48 Year
  Sex: Female
  Weight: 63 kg

DRUGS (1)
  1. BENADRYL [Suspect]
     Active Substance: DIPHENHYDRAMINE HYDROCHLORIDE
     Indication: Multiple allergies
     Dosage: FREQUENCY : EVERY 6 HOURS;?
     Dates: start: 20230416, end: 20230416

REACTIONS (3)
  - Sinus disorder [None]
  - Oropharyngeal pain [None]
  - Sinonasal obstruction [None]

NARRATIVE: CASE EVENT DATE: 20230416
